FAERS Safety Report 6738519-0 (Version None)
Quarter: 2010Q2

REPORT INFORMATION
  Report Type: 
  Country: None (occurrence: None)
  Receive Date: 20100524
  Receipt Date: 20100520
  Transmission Date: 20101027
  Serious: Yes (Life-Threatening)
  Sender: FDA-Public Use
  Company Number: PHHY2010CA32922

PATIENT
  Sex: Female

DRUGS (11)
  1. ALISKIREN ALI+ [Suspect]
     Indication: HYPERTENSION
     Dosage: 150 MG DAILY
     Route: 048
     Dates: start: 20100515, end: 20100516
  2. TRIAMTERENE [Concomitant]
     Dosage: 50 MG
  3. HYDROCHLOROTHIAZIDE [Concomitant]
     Dosage: 25 MG
     Dates: start: 20060101
  4. LIPITOR [Concomitant]
     Dosage: 4 G
     Dates: start: 20080101
  5. EFFEXOR [Concomitant]
     Dosage: 150 G XR
  6. PERINDOPRIL [Concomitant]
     Dosage: 8 MG
     Dates: start: 20080101
  7. SYNTHROID [Concomitant]
  8. ASAPHEN [Concomitant]
     Dosage: 80 MG
     Dates: start: 20080101
  9. CODEINE SULFATE [Concomitant]
     Dosage: UNK
     Dates: start: 20090101
  10. VITAMIN D [Concomitant]
     Dosage: 10000 IU
  11. VITAMIN D [Concomitant]
     Dosage: UNK
     Dates: start: 20100516

REACTIONS (4)
  - ERYTHEMA [None]
  - OEDEMA [None]
  - PRURITUS [None]
  - TONGUE OEDEMA [None]
